FAERS Safety Report 14879191 (Version 2)
Quarter: 2018Q2

REPORT INFORMATION
  Report Type: Report from Study
  Country: CN (occurrence: CN)
  Receive Date: 20180511
  Receipt Date: 20180522
  Transmission Date: 20180711
  Serious: Yes (Hospitalization)
  Sender: FDA-Public Use
  Company Number: CN-ROCHE-2121678

PATIENT
  Age: 78 Year
  Sex: Male
  Weight: 50 kg

DRUGS (3)
  1. ERLOTINIB [Suspect]
     Active Substance: ERLOTINIB
     Route: 048
     Dates: start: 20180429, end: 20180503
  2. BEVACIZUMAB. [Suspect]
     Active Substance: BEVACIZUMAB
     Indication: LUNG NEOPLASM MALIGNANT
     Dosage: LAST DOSE OF BEVACIZUMAB TAKEN PRIOR TO THE ADVERSE EVENT WAS 960 MG
     Route: 041
     Dates: start: 20170414
  3. ERLOTINIB [Suspect]
     Active Substance: ERLOTINIB
     Indication: LUNG NEOPLASM MALIGNANT
     Dosage: DAY 1 OF A 21-DAY (WITHIN 3 DAYS) CYCLE ?LAST DOSE OF ERLOTINIB TAKEN PRIOR TO THE ADVERSE EVENT  WA
     Route: 048
     Dates: start: 20170415, end: 20180428

REACTIONS (1)
  - Decreased appetite [Recovered/Resolved]

NARRATIVE: CASE EVENT DATE: 20170509
